FAERS Safety Report 18032508 (Version 3)
Quarter: 2024Q1

REPORT INFORMATION
  Report Type: Other
  Country: TR (occurrence: None)
  Receive Date: 20200716
  Receipt Date: 20240324
  Transmission Date: 20240410
  Serious: No
  Sender: FDA-Public Use
  Company Number: TR-ROCHE-2642232

PATIENT
  Age: 34 Year
  Sex: Female
  Weight: 61 kg

DRUGS (22)
  1. OCRELIZUMAB [Suspect]
     Active Substance: OCRELIZUMAB
     Indication: Relapsing-remitting multiple sclerosis
     Dosage: SUBSEQUENT THERAPY RECEIVED ON: 09/JUL/2019 AND 08/JAN/2020
     Route: 042
     Dates: start: 20190627, end: 20190627
  2. OCRELIZUMAB [Suspect]
     Active Substance: OCRELIZUMAB
     Route: 042
     Dates: start: 20200714, end: 20200714
  3. OCRELIZUMAB [Suspect]
     Active Substance: OCRELIZUMAB
     Route: 042
     Dates: start: 20210114, end: 20210114
  4. OCRELIZUMAB [Suspect]
     Active Substance: OCRELIZUMAB
     Route: 042
     Dates: start: 20210714, end: 20210714
  5. OCRELIZUMAB [Suspect]
     Active Substance: OCRELIZUMAB
     Route: 042
     Dates: start: 20220114, end: 20220114
  6. OCRELIZUMAB [Suspect]
     Active Substance: OCRELIZUMAB
     Dosage: SUBSEQUENT DOSE RECEIVED ON 10/MAR/2023, 22/NOV/2023
     Route: 042
     Dates: start: 20220808, end: 20220808
  7. MODIWAKE [Concomitant]
     Route: 048
  8. CIPRALEX [Concomitant]
     Active Substance: ESCITALOPRAM OXALATE
     Indication: Depression
     Route: 048
     Dates: start: 20140313, end: 201404
  9. CIPRALEX [Concomitant]
     Active Substance: ESCITALOPRAM OXALATE
     Route: 048
     Dates: start: 20150320, end: 20151015
  10. CIPRALEX [Concomitant]
     Active Substance: ESCITALOPRAM OXALATE
     Route: 048
     Dates: start: 20151015, end: 20151217
  11. MODAFINIL [Concomitant]
     Active Substance: MODAFINIL
     Route: 048
     Dates: start: 20151015, end: 20151117
  12. AUBAGIO [Concomitant]
     Active Substance: TERIFLUNOMIDE
     Route: 048
     Dates: start: 20160202, end: 20180801
  13. DRAMAMINE [Concomitant]
     Active Substance: DIMENHYDRINATE
     Route: 048
     Dates: start: 20200204, end: 20200204
  14. DRAMAMINE [Concomitant]
     Active Substance: DIMENHYDRINATE
     Route: 048
     Dates: start: 20190627, end: 20190627
  15. DRAMAMINE [Concomitant]
     Active Substance: DIMENHYDRINATE
     Route: 048
     Dates: start: 20190709
  16. DRAMAMINE [Concomitant]
     Active Substance: DIMENHYDRINATE
     Route: 048
     Dates: start: 20200108
  17. ACETAMINOPHEN [Concomitant]
     Active Substance: ACETAMINOPHEN
     Route: 048
     Dates: start: 20190627, end: 20190627
  18. ACETAMINOPHEN [Concomitant]
     Active Substance: ACETAMINOPHEN
     Route: 048
     Dates: start: 20190709, end: 20190709
  19. ACETAMINOPHEN [Concomitant]
     Active Substance: ACETAMINOPHEN
     Route: 048
     Dates: start: 20200108, end: 20200108
  20. PHENIRAMINE [Concomitant]
     Active Substance: PHENIRAMINE
     Route: 042
     Dates: start: 20190627
  21. PHENIRAMINE [Concomitant]
     Active Substance: PHENIRAMINE
     Route: 042
     Dates: start: 20190709
  22. PHENIRAMINE [Concomitant]
     Active Substance: PHENIRAMINE
     Route: 042
     Dates: start: 20200108

REACTIONS (1)
  - Influenza [Recovered/Resolved]

NARRATIVE: CASE EVENT DATE: 20191021
